FAERS Safety Report 5653144-0 (Version None)
Quarter: 2008Q1

REPORT INFORMATION
  Report Type: 
  Country: None (occurrence: None)
  Receive Date: 20080131
  Receipt Date: 20071017
  Transmission Date: 20080703
  Serious: No
  Sender: FDA-Public Use
  Company Number: US200710004442

PATIENT
  Age: 73 Year
  Sex: Female
  Weight: 78.9 kg

DRUGS (4)
  1. BYETTA [Suspect]
     Indication: TYPE 2 DIABETES MELLITUS
     Dosage: 5 UG, 2/D, SUBCUTANEOUS
     Route: 058
     Dates: start: 20071013, end: 20071017
  2. PRANDIN /USA/ (REPAGLINIDE) [Concomitant]
  3. DRUG USED IN DIABETES [Concomitant]
  4. OMEPRAZOLE [Concomitant]

REACTIONS (6)
  - CHILLS [None]
  - DIZZINESS [None]
  - DYSPEPSIA [None]
  - FEELING COLD [None]
  - MALAISE [None]
  - PRESYNCOPE [None]
